FAERS Safety Report 7244312-5 (Version None)
Quarter: 2011Q1

REPORT INFORMATION
  Report Type: 
  Country: None (occurrence: None)
  Receive Date: 20110125
  Receipt Date: 20110114
  Transmission Date: 20110831
  Serious: Yes (Hospitalization)
  Sender: FDA-Public Use
  Company Number: US-CELGENEUS-163-21880-11011545

PATIENT
  Sex: Male
  Weight: 62.595 kg

DRUGS (7)
  1. HYDROMORPHONE [Concomitant]
     Indication: PAIN
     Route: 048
  2. REVLIMID [Suspect]
     Indication: MULTIPLE MYELOMA
     Route: 048
     Dates: start: 20100715
  3. HYDROCODONE [Concomitant]
     Indication: PAIN
     Route: 048
  4. NEXIUM [Concomitant]
     Route: 065
  5. ASPIRIN [Concomitant]
     Route: 048
  6. METFORMIN HCL [Concomitant]
     Route: 048
     Dates: start: 20100101
  7. MULTI-VITAMIN [Concomitant]
     Indication: ROUTINE HEALTH MAINTENANCE
     Route: 048

REACTIONS (3)
  - DIVERTICULITIS [None]
  - INFECTION [None]
  - ENTEROVESICAL FISTULA [None]
